APPROVED DRUG PRODUCT: DOXEPIN HYDROCHLORIDE
Active Ingredient: DOXEPIN HYDROCHLORIDE
Strength: EQ 150MG BASE
Dosage Form/Route: CAPSULE;ORAL
Application: N016987 | Product #007
Applicant: NEW RIVER PHARMACEUTICALS INC
Approved: Apr 13, 1987 | RLD: No | RS: No | Type: DISCN